FAERS Safety Report 6731325-2 (Version None)
Quarter: 2010Q2

REPORT INFORMATION
  Report Type: 
  Country: None (occurrence: None)
  Receive Date: 20100517
  Receipt Date: 20100517
  Transmission Date: 20101027
  Serious: Yes (Other)
  Sender: FDA-Public Use
  Company Number: None

PATIENT
  Sex: Female
  Weight: 81.6475 kg

DRUGS (1)
  1. ADDERALL 30 [Suspect]
     Indication: ATTENTION DEFICIT/HYPERACTIVITY DISORDER
     Dosage: 30 MG 2 X DAY PO
     Route: 048
     Dates: start: 20050101, end: 20100515

REACTIONS (7)
  - HAIR GROWTH ABNORMAL [None]
  - HAIR TEXTURE ABNORMAL [None]
  - HYPERTRICHOSIS [None]
  - INGROWING NAIL [None]
  - ONYCHOCLASIS [None]
  - SKIN EXFOLIATION [None]
  - SKIN HYPERTROPHY [None]
